FAERS Safety Report 18009411 (Version 2)
Quarter: 2022Q1

REPORT INFORMATION
  Report Type: Other
  Country: JP (occurrence: None)
  Receive Date: 20200710
  Receipt Date: 20220312
  Transmission Date: 20220423
  Serious: Yes (Other)
  Sender: FDA-Public Use
  Company Number: JP-NEOPHARMA INC-000343

PATIENT
  Age: 75 Year
  Sex: Male

DRUGS (1)
  1. IRINOTECAN [Suspect]
     Active Substance: IRINOTECAN
     Indication: Chemotherapy
     Dosage: 18 IRINOTECAN TREATMENT CYCLES WERE ADMINISTERED OVER 11 MONTHS.

REACTIONS (2)
  - Disease recurrence [Unknown]
  - Metastases to lymph nodes [Unknown]
